FAERS Safety Report 15542361 (Version 1)
Quarter: 2018Q4

REPORT INFORMATION
  Report Type: Spontaneous
  Country: US (occurrence: US)
  Receive Date: 20181017
  Receipt Date: 20181017
  Transmission Date: 20190205
  Serious: Yes (Other)
  Sender: FDA-Public Use
  Company Number: None

PATIENT
  Age: 66 Year
  Sex: Male

DRUGS (1)
  1. TAMSULOSIN 0.4MG [Suspect]
     Active Substance: TAMSULOSIN
     Indication: URINE OUTPUT INCREASED
     Dosage: ?          QUANTITY:1 TABLET(S);?
     Dates: start: 20181005, end: 20181017

REACTIONS (3)
  - Product use complaint [None]
  - Male orgasmic disorder [None]
  - Semen volume decreased [None]

NARRATIVE: CASE EVENT DATE: 20181005
